FAERS Safety Report 9696045 (Version 1)
Quarter: 2013Q4

REPORT INFORMATION
  Report Type: Spontaneous
  Country: CH (occurrence: None)
  Receive Date: 20131115
  Receipt Date: 20131115
  Transmission Date: 20140711
  Serious: Yes (Hospitalization)
  Sender: FDA-Public Use
  Company Number: CH-MEDIGENE-000471

PATIENT
  Sex: Female

DRUGS (1)
  1. VEREGEN [Suspect]
     Indication: ANOGENITAL WARTS
     Route: 061

REACTIONS (2)
  - Hypersensitivity [None]
  - Application site hypersensitivity [None]
